FAERS Safety Report 24214099 (Version 1)
Quarter: 2024Q3

REPORT INFORMATION
  Report Type: Spontaneous
  Country: US (occurrence: None)
  Receive Date: 20240814
  Receipt Date: 20240814
  Transmission Date: 20241017
  Serious: No
  Sender: Public
  Company Number: None

PATIENT
  Age: 76 Year
  Sex: Male

DRUGS (1)
  1. XDEMVY [Suspect]
     Active Substance: LOTILANER
     Indication: Demodex blepharitis
     Dosage: 1 GTT DROP(S) TWICE A DAY OPHTHALMIC
     Route: 047
     Dates: start: 20240614, end: 20240726

REACTIONS (2)
  - Scleral pigmentation [None]
  - Treatment noncompliance [None]

NARRATIVE: CASE EVENT DATE: 20240726
